FAERS Safety Report 5770671-6 (Version None)
Quarter: 2008Q2

REPORT INFORMATION
  Report Type: 
  Country: None (occurrence: None)
  Receive Date: 20080613
  Receipt Date: 20080509
  Transmission Date: 20081010
  Serious: No
  Sender: FDA-Public Use
  Company Number: US-ABBOTT-08P-163-0451207-00

PATIENT
  Sex: Female
  Weight: 60.382 kg

DRUGS (2)
  1. HUMIRA [Suspect]
     Indication: RHEUMATOID ARTHRITIS
     Route: 058
     Dates: start: 20080301
  2. HUMIRA [Suspect]
     Indication: RHEUMATOID ARTHRITIS
     Dates: end: 20080420

REACTIONS (5)
  - ALOPECIA [None]
  - HAIR TEXTURE ABNORMAL [None]
  - INJECTION SITE PAIN [None]
  - PALLOR [None]
  - VITAMIN D DECREASED [None]
